FAERS Safety Report 7740263-8 (Version None)
Quarter: 2011Q3

REPORT INFORMATION
  Report Type: 
  Country: None (occurrence: None)
  Receive Date: 20110909
  Receipt Date: 20110830
  Transmission Date: 20111222
  Serious: Yes (Other)
  Sender: FDA-Public Use
  Company Number: DE-JNJFOC-20110901161

PATIENT
  Sex: Female
  Weight: 78 kg

DRUGS (1)
  1. USTEKINUMAB [Suspect]
     Indication: PSORIASIS
     Route: 058
     Dates: start: 20090907, end: 20101201

REACTIONS (1)
  - CARCINOEMBRYONIC ANTIGEN INCREASED [None]
